FAERS Safety Report 6412146-7 (Version None)
Quarter: 2009Q4

REPORT INFORMATION
  Report Type: 
  Country: None (occurrence: None)
  Receive Date: 20091023
  Receipt Date: 20091019
  Transmission Date: 20100525
  Serious: Yes (Hospitalization, Congenital Anomaly)
  Sender: FDA-Public Use
  Company Number: A0680404A

PATIENT
  Sex: Male

DRUGS (6)
  1. PAXIL [Suspect]
     Indication: ANXIETY
     Dates: start: 20001001, end: 20020101
  2. TRAZODONE [Concomitant]
  3. VITAMIN TAB [Concomitant]
  4. PROZAC [Concomitant]
  5. CLARITIN [Concomitant]
  6. IRON [Concomitant]

REACTIONS (3)
  - CARDIAC MURMUR [None]
  - CONGENITAL ANOMALY [None]
  - DRUG EXPOSURE DURING PREGNANCY [None]
